FAERS Safety Report 23728992 (Version 1)
Quarter: 2024Q2

REPORT INFORMATION
  Report Type: Spontaneous
  Country: PR (occurrence: PR)
  Receive Date: 20240410
  Receipt Date: 20240410
  Transmission Date: 20240716
  Serious: No
  Sender: FDA-Public Use
  Company Number: PR-BRISTOL-MYERS SQUIBB COMPANY-2024-056766

PATIENT
  Age: 71 Year
  Sex: Male
  Weight: 75.75 kg

DRUGS (1)
  1. REVLIMID [Suspect]
     Active Substance: LENALIDOMIDE
     Indication: Plasma cell myeloma
     Dosage: PRODUCT START DATE: 31/AGO/2020
     Route: 048

REACTIONS (2)
  - Influenza [Recovering/Resolving]
  - Asthma [Recovering/Resolving]
